FAERS Safety Report 8257439-6 (Version None)
Quarter: 2012Q2

REPORT INFORMATION
  Report Type: 
  Country: None (occurrence: None)
  Receive Date: 20120403
  Receipt Date: 20120319
  Transmission Date: 20120825
  Serious: Yes (Other)
  Sender: FDA-Public Use
  Company Number: ES-JNJFOC-20111110732

PATIENT
  Age: 28 Year
  Sex: Female

DRUGS (5)
  1. PYRAZINAMIDE [Concomitant]
     Indication: LYMPH NODE TUBERCULOSIS
  2. ETHAMBUTOL HYDROCHLORIDE [Concomitant]
     Indication: LYMPH NODE TUBERCULOSIS
  3. USTEKINUMAB [Suspect]
     Indication: PSORIASIS
     Route: 058
  4. USTEKINUMAB [Suspect]
     Route: 058
  5. ISONIAZID [Concomitant]
     Indication: LYMPH NODE TUBERCULOSIS

REACTIONS (2)
  - LYMPH NODE TUBERCULOSIS [None]
  - TRANSAMINASES INCREASED [None]
